FAERS Safety Report 8987907 (Version 1)
Quarter: 2012Q4

REPORT INFORMATION
  Report Type: 
  Country: ES (occurrence: ES)
  Receive Date: 20121227
  Receipt Date: 20121227
  Transmission Date: 20130627
  Serious: Yes (Hospitalization)
  Sender: FDA-Public Use
  Company Number: ES-GLAXOSMITHKLINE-B0854711A

PATIENT
  Age: 70 Year
  Sex: Male

DRUGS (7)
  1. DUODART [Suspect]
     Indication: BENIGN PROSTATIC HYPERPLASIA
     Route: 065
     Dates: start: 20121018, end: 20121104
  2. METFORMIN HYDROCHLORIDE [Concomitant]
  3. QUINAPRIL [Concomitant]
  4. TRANXILIUM [Concomitant]
  5. PARACETAMOL [Concomitant]
  6. SIMVASTATIN [Concomitant]
  7. OMEPRAZOL [Concomitant]

REACTIONS (2)
  - Pruritus generalised [Recovering/Resolving]
  - Generalised erythema [Recovering/Resolving]
